FAERS Safety Report 6295834-5 (Version None)
Quarter: 2009Q3

REPORT INFORMATION
  Report Type: 
  Country: None (occurrence: None)
  Receive Date: 20090731
  Receipt Date: 20090716
  Transmission Date: 20100115
  Serious: Yes (Hospitalization)
  Sender: FDA-Public Use
  Company Number: 2009PV038646

PATIENT
  Age: 84 Year
  Sex: Female

DRUGS (11)
  1. SYMLIN [Suspect]
     Indication: TYPE 2 DIABETES MELLITUS
     Dates: start: 20070101, end: 20080101
  2. BYETTA [Concomitant]
  3. OLMESARTAN MEDOXOMIL [Concomitant]
  4. MULTIVIAMINS [Concomitant]
  5. OSCAL [Concomitant]
  6. GLIMEPIRIDE [Concomitant]
  7. PREMPRO [Concomitant]
  8. PROSCAR [Concomitant]
  9. INSULIN [Concomitant]
  10. MOBIC [Concomitant]
  11. LEVAQUIN [Concomitant]

REACTIONS (19)
  - ARTHRALGIA [None]
  - BLADDER PROLAPSE [None]
  - BLOOD GLUCOSE INCREASED [None]
  - BLOOD URINE PRESENT [None]
  - DYSPEPSIA [None]
  - ERUCTATION [None]
  - FALL [None]
  - INCONTINENCE [None]
  - INCORRECT DOSE ADMINISTERED [None]
  - MUSCLE SPASMS [None]
  - NEPHROPATHY [None]
  - OEDEMA PERIPHERAL [None]
  - PALLOR [None]
  - TENDONITIS [None]
  - URINARY TRACT INFECTION [None]
  - UTERINE PROLAPSE [None]
  - VOMITING [None]
  - WEIGHT INCREASED [None]
  - WRONG TECHNIQUE IN DRUG USAGE PROCESS [None]
